FAERS Safety Report 9862044 (Version 1)
Quarter: 2014Q1

REPORT INFORMATION
  Report Type: Spontaneous
  Country: US (occurrence: US)
  Receive Date: 20140203
  Receipt Date: 20140203
  Transmission Date: 20141002
  Serious: No
  Sender: FDA-Public Use
  Company Number: US-009507513-1401USA012303

PATIENT
  Sex: Female
  Weight: 79.37 kg

DRUGS (3)
  1. ZOCOR [Suspect]
     Indication: BLOOD CHOLESTEROL INCREASED
     Route: 048
  2. GLUCOPHAGE [Concomitant]
     Dosage: UNK
  3. [THERAPY UNSPECIFIED] [Concomitant]
     Indication: HYPERTENSION
     Dosage: UNK

REACTIONS (7)
  - Influenza like illness [Unknown]
  - Drug tolerance [Unknown]
  - Adverse event [Unknown]
  - Blood cholesterol abnormal [Unknown]
  - Myalgia [Unknown]
  - Arthralgia [Unknown]
  - Malaise [Unknown]
